FAERS Safety Report 5964275-X (Version None)
Quarter: 2008Q4

REPORT INFORMATION
  Report Type: 
  Country: None (occurrence: None)
  Receive Date: 20081124
  Receipt Date: 20081118
  Transmission Date: 20090506
  Serious: Yes (Other)
  Sender: FDA-Public Use
  Company Number: ZA-PFIZER INC-2008098016

PATIENT
  Age: 50 Year
  Sex: Female

DRUGS (3)
  1. CELEBREX [Suspect]
     Route: 048
  2. ELTROXIN [Concomitant]
  3. WARFARIN SODIUM [Concomitant]

REACTIONS (1)
  - HAEMORRHAGE [None]
